FAERS Safety Report 15613468 (Version 1)
Quarter: 2018Q4

REPORT INFORMATION
  Report Type: Spontaneous
  Country: US (occurrence: US)
  Receive Date: 20181108
  Receipt Date: 20181108
  Transmission Date: 20190205
  Serious: Yes (Hospitalization)
  Sender: FDA-Public Use
  Company Number: None

PATIENT
  Age: 52 Year
  Sex: Female

DRUGS (7)
  1. FLINTSTONES CHW. [Concomitant]
  2. GABAPENTIN. [Concomitant]
     Active Substance: GABAPENTIN
  3. HYDROCO [Concomitant]
  4. XANAX [Concomitant]
     Active Substance: ALPRAZOLAM
  5. MORPHINE [Concomitant]
     Active Substance: MORPHINE
  6. ORENCIA [Suspect]
     Active Substance: ABATACEPT
     Indication: RHEUMATOID ARTHRITIS
     Dosage: ?          OTHER DOSE:ORENCIA 125MG;?
     Route: 058
     Dates: start: 20181020
  7. PLAQUENIL [Concomitant]
     Active Substance: HYDROXYCHLOROQUINE SULFATE

REACTIONS (6)
  - Pain [None]
  - Fatigue [None]
  - Pyrexia [None]
  - Lung disorder [None]
  - Oxygen therapy [None]
  - Condition aggravated [None]

NARRATIVE: CASE EVENT DATE: 201810
